FAERS Safety Report 6710617-7 (Version None)
Quarter: 2010Q2

REPORT INFORMATION
  Report Type: 
  Country: None (occurrence: None)
  Receive Date: 20100504
  Receipt Date: 20100421
  Transmission Date: 20101027
  Serious: Yes (Other)
  Sender: FDA-Public Use
  Company Number: TW-MERCK-1004TWN00081

PATIENT
  Age: 86 Year
  Sex: Male
  Weight: 73 kg

DRUGS (16)
  1. CANCIDAS [Suspect]
     Indication: SYSTEMIC CANDIDA
     Route: 041
  2. CANCIDAS [Suspect]
     Route: 041
  3. CANCIDAS [Suspect]
     Indication: SEPSIS
     Route: 041
  4. CANCIDAS [Suspect]
     Route: 041
  5. CILASTATIN SODIUM AND IMIPENEM [Concomitant]
     Indication: SEPSIS
     Route: 042
  6. TEICOPLANIN [Concomitant]
     Indication: SEPSIS
     Route: 042
  7. SPIRONOLACTONE [Concomitant]
     Route: 048
  8. PANTOPRAZOLE [Concomitant]
     Route: 042
  9. METOCLOPRAMIDE [Concomitant]
     Route: 042
  10. DIGOXIN [Concomitant]
     Route: 048
  11. CYPROHEPTADINE HYDROCHLORIDE [Concomitant]
     Route: 048
  12. BUDESONIDE [Concomitant]
     Route: 065
  13. AMINO ACIDS (UNSPECIFIED) [Concomitant]
     Route: 041
  14. ACETYLCYSTEINE [Concomitant]
     Route: 048
  15. FLUCONAZOLE [Concomitant]
     Indication: INCISION SITE INFECTION
     Route: 042
  16. LEVOCETIRIZINE [Concomitant]
     Route: 048

REACTIONS (1)
  - TOXIC EPIDERMAL NECROLYSIS [None]
